FAERS Safety Report 9420271 (Version 1)
Quarter: 2013Q3

REPORT INFORMATION
  Report Type: Spontaneous
  Country: US (occurrence: US)
  Receive Date: 20130725
  Receipt Date: 20130725
  Transmission Date: 20140515
  Serious: No
  Sender: FDA-Public Use
  Company Number: US-PFIZER INC-2013214736

PATIENT
  Age: 62 Year
  Sex: Male
  Weight: 87.98 kg

DRUGS (9)
  1. XELJANZ [Suspect]
     Indication: RHEUMATOID ARTHRITIS
     Dosage: 5 MG, 2X/DAY
     Route: 048
  2. ASPIRIN [Concomitant]
     Dosage: 81 MG, UNK
     Route: 048
  3. VITAMIN B12 [Concomitant]
     Dosage: 1000 CR
     Route: 048
  4. VITAMIN B6 [Concomitant]
     Dosage: 200 MG, UNK
     Route: 048
  5. METHOTREXATE [Concomitant]
     Dosage: 2.5 MG, UNK
     Route: 048
  6. GINKGO [Concomitant]
     Dosage: 40 MG, UNK
     Route: 048
  7. GINSENG [Concomitant]
     Dosage: 500 MG, UNK
     Route: 048
  8. VITAMIN D [Concomitant]
     Dosage: 1000 IU, UNK
     Route: 048
  9. FOLIC ACID [Concomitant]
     Route: 048

REACTIONS (1)
  - Cough [Unknown]
